FAERS Safety Report 8984731 (Version 1)
Quarter: 2012Q4

REPORT INFORMATION
  Report Type: Spontaneous
  Country: US (occurrence: None)
  Receive Date: 20121214
  Receipt Date: 20121214
  Transmission Date: 20130627
  Serious: Yes (Hospitalization)
  Sender: FDA-Public Use
  Company Number: 2012P1066516

PATIENT
  Age: 55 Year
  Sex: Female

DRUGS (1)
  1. INFUMORPH [Suspect]

REACTIONS (4)
  - Headache [None]
  - Implant site effusion [None]
  - Meningitis [None]
  - Injury [None]
